FAERS Safety Report 16596452 (Version 1)
Quarter: 2019Q3

REPORT INFORMATION
  Report Type: Spontaneous
  Country: US (occurrence: US)
  Receive Date: 20190718
  Receipt Date: 20190718
  Transmission Date: 20191004
  Serious: Yes (Hospitalization, Disabling)
  Sender: FDA-Public Use
  Company Number: None

PATIENT
  Age: 36 Year
  Sex: Female
  Weight: 81 kg

DRUGS (2)
  1. MOXIFLOXACIN 400 MG TABLET [Suspect]
     Active Substance: MOXIFLOXACIN
     Indication: PATHOGEN RESISTANCE
     Dosage: ?          QUANTITY:14 TABLET(S);?
     Route: 048
  2. MOXIFLOXACIN 400 MG TABLET [Suspect]
     Active Substance: MOXIFLOXACIN
     Indication: MYCOPLASMA INFECTION
     Dosage: ?          QUANTITY:14 TABLET(S);?
     Route: 048

REACTIONS (12)
  - Feeling hot [None]
  - Neurogenic bladder [None]
  - Diplegia [None]
  - Seizure [None]
  - Nerve injury [None]
  - Depersonalisation/derealisation disorder [None]
  - Tendon disorder [None]
  - Affect lability [None]
  - Photophobia [None]
  - Eye pain [None]
  - Hypoaesthesia [None]
  - Tremor [None]

NARRATIVE: CASE EVENT DATE: 20181019
